FAERS Safety Report 16218036 (Version 1)
Quarter: 2019Q2

REPORT INFORMATION
  Report Type: Spontaneous
  Country: CO (occurrence: CO)
  Receive Date: 20190419
  Receipt Date: 20190419
  Transmission Date: 20190711
  Serious: Yes (Hospitalization)
  Sender: FDA-Public Use
  Company Number: PHHY2019CO088729

PATIENT
  Age: 69 Year
  Sex: Female

DRUGS (1)
  1. LOSARTAN. [Suspect]
     Active Substance: LOSARTAN
     Indication: HYPERTENSION
     Dosage: 50 MG, Q12H
     Route: 065

REACTIONS (7)
  - Ocular icterus [Unknown]
  - Ovarian germ cell endodermal sinus tumour [Unknown]
  - Bile duct obstruction [Unknown]
  - Escherichia urinary tract infection [Unknown]
  - Pelvic mass [Unknown]
  - Nausea [Unknown]
  - Abdominal pain upper [Unknown]
